FAERS Safety Report 6040259-0 (Version None)
Quarter: 2009Q1

REPORT INFORMATION
  Report Type: 
  Country: None (occurrence: None)
  Receive Date: 20090116
  Receipt Date: 20080129
  Transmission Date: 20090719
  Serious: Yes (Other)
  Sender: FDA-Public Use
  Company Number: US-BRISTOL-MYERS SQUIBB COMPANY-14057707

PATIENT

DRUGS (3)
  1. ABILIFY [Suspect]
     Route: 065
  2. LAMICTAL [Suspect]
     Indication: EPILEPSY
     Dosage: TABLETS.
     Route: 048
  3. GEODON [Suspect]
     Route: 065

REACTIONS (1)
  - HEPATIC ENZYME INCREASED [None]
